FAERS Safety Report 22595504 (Version 1)
Quarter: 2023Q2

REPORT INFORMATION
  Report Type: Spontaneous
  Country: JP (occurrence: JP)
  Receive Date: 20230613
  Receipt Date: 20230613
  Transmission Date: 20230721
  Serious: Yes (Other)
  Sender: FDA-Public Use
  Company Number: JP-BAYER-2023A077233

PATIENT
  Age: 8 Decade
  Sex: Male

DRUGS (2)
  1. NUBEQA [Suspect]
     Active Substance: DAROLUTAMIDE
     Indication: Prostate cancer
     Dosage: DAILY DOSE 300 MG
  2. GONADORELIN [Concomitant]
     Active Substance: GONADORELIN
     Indication: Prostate cancer

REACTIONS (2)
  - Cytopenia [Recovering/Resolving]
  - Off label use [None]
